FAERS Safety Report 6133011-9 (Version None)
Quarter: 2009Q1

REPORT INFORMATION
  Report Type: 
  Country: None (occurrence: None)
  Receive Date: 20090326
  Receipt Date: 20090319
  Transmission Date: 20090719
  Serious: Yes (Other)
  Sender: FDA-Public Use
  Company Number: BR-PFIZER INC-2008100457

PATIENT

DRUGS (1)
  1. DETRUSITOL LA [Suspect]

REACTIONS (3)
  - HYPOTENSION [None]
  - MALAISE [None]
  - STEVENS-JOHNSON SYNDROME [None]
